FAERS Safety Report 10224017 (Version 2)
Quarter: 2015Q4

REPORT INFORMATION
  Report Type: Other
  Country: DE (occurrence: DE)
  Receive Date: 20140609
  Receipt Date: 20151224
  Transmission Date: 20160304
  Serious: Yes (Other)
  Sender: FDA-Public Use
  Company Number: DE-LUPIN PHARMACEUTICALS INC.-E2B_00002073

PATIENT
  Age: 1 Day
  Sex: Male
  Weight: 1.97 kg

DRUGS (2)
  1. QUETIAPINE [Suspect]
     Active Substance: QUETIAPINE
     Indication: SUICIDAL IDEATION
     Route: 064
     Dates: start: 20130719, end: 20130719
  2. QUETIAPINE [Suspect]
     Active Substance: QUETIAPINE
     Indication: SCHIZOPHRENIA, PARANOID TYPE
     Dosage: 300MG
     Route: 064

REACTIONS (9)
  - Anaemia neonatal [Recovered/Resolved]
  - Temperature regulation disorder [Recovered/Resolved]
  - Feeding disorder of infancy or early childhood [Recovered/Resolved]
  - Hypotonia neonatal [Recovered/Resolved]
  - Transient tachypnoea of the newborn [Recovered/Resolved]
  - Metabolic acidosis [Recovered/Resolved]
  - Neonatal respiratory distress syndrome [Recovered/Resolved]
  - Foetal exposure during pregnancy [Unknown]
  - Low birth weight baby [Recovering/Resolving]

NARRATIVE: CASE EVENT DATE: 20130719
